FAERS Safety Report 9299962 (Version 1)
Quarter: 2013Q1

REPORT INFORMATION
  Report Type: Spontaneous
  Country: US (occurrence: None)
  Receive Date: 20121231
  Receipt Date: 20121231
  Transmission Date: 20140127
  Serious: Yes (Other)
  Sender: FDA-Public Use
  Company Number: RB-45848-2012

PATIENT
  Age: 28 Year
  Sex: Female

DRUGS (2)
  1. SUBOXONE [Suspect]
     Indication: PRODUCT USED FOR UNKNOWN INDICATION
     Dosage: (SUBOXONE FILM ; DOSING DETAILS UNKNOWN UNKNOWN)
  2. SUBUTEX [Suspect]
     Dosage: ( DOSING DETAILS UNKNOWN UNKNOWN)

REACTIONS (2)
  - Suppressed lactation [None]
  - Maternal exposure during pregnancy [None]
